FAERS Safety Report 7635615-0 (Version None)
Quarter: 2011Q3

REPORT INFORMATION
  Report Type: 
  Country: None (occurrence: None)
  Receive Date: 20110726
  Receipt Date: 20110714
  Transmission Date: 20111222
  Serious: Yes (Hospitalization)
  Sender: FDA-Public Use
  Company Number: PHFR2010GB04981

PATIENT
  Sex: Male

DRUGS (4)
  1. VALPROATE SODIUM [Concomitant]
     Indication: MOOD ALTERED
     Dosage: 600 MG, BID
  2. VALPROATE SODIUM [Concomitant]
     Dosage: 1.2 G, UNK
     Route: 048
  3. CLOZAPINE [Suspect]
     Indication: SCHIZOPHRENIA
     Dosage: 300 MG, UNK
     Route: 048
     Dates: start: 20040712
  4. CLOZAPINE [Suspect]
     Indication: PSYCHOTIC DISORDER
     Dosage: 250 MG, NOCTE
     Route: 048

REACTIONS (13)
  - EMPYEMA [None]
  - DIFFERENTIAL WHITE BLOOD CELL COUNT ABNORMAL [None]
  - PLATELET COUNT INCREASED [None]
  - WHITE BLOOD CELL COUNT INCREASED [None]
  - EOSINOPHIL COUNT INCREASED [None]
  - BLOOD AMYLASE DECREASED [None]
  - ANTIPSYCHOTIC DRUG LEVEL INCREASED [None]
  - HAEMOGLOBIN DECREASED [None]
  - C-REACTIVE PROTEIN INCREASED [None]
  - ALANINE AMINOTRANSFERASE INCREASED [None]
  - LOWER RESPIRATORY TRACT INFECTION [None]
  - ANAEMIA [None]
  - BLOOD ALKALINE PHOSPHATASE INCREASED [None]
